FAERS Safety Report 15183284 (Version 1)
Quarter: 2018Q3

REPORT INFORMATION
  Report Type: Spontaneous
  Country: DE (occurrence: DE)
  Receive Date: 20180723
  Receipt Date: 20180723
  Transmission Date: 20181010
  Serious: Yes (Other)
  Sender: FDA-Public Use
  Company Number: DE-ELI_LILLY_AND_COMPANY-DE201807004873

PATIENT
  Sex: Male
  Weight: 60 kg

DRUGS (1)
  1. ZYPREXA [Suspect]
     Active Substance: OLANZAPINE
     Indication: PRODUCT USED FOR UNKNOWN INDICATION
     Dosage: UNK, UNKNOWN
     Route: 065

REACTIONS (5)
  - Motor dysfunction [Unknown]
  - Cognitive disorder [Unknown]
  - Fatigue [Unknown]
  - Diabetes mellitus [Unknown]
  - Abnormal weight gain [Unknown]
